FAERS Safety Report 18848289 (Version 3)
Quarter: 2021Q2

REPORT INFORMATION
  Report Type: Report from Study
  Country: US (occurrence: US)
  Receive Date: 20210204
  Receipt Date: 20210416
  Transmission Date: 20210717
  Serious: Yes (Hospitalization, Other)
  Sender: FDA-Public Use
  Company Number: US-TAKEDA-US201932053

PATIENT
  Sex: Male
  Weight: 108 kg

DRUGS (12)
  1. TEDUGLUTIDE [Suspect]
     Active Substance: TEDUGLUTIDE
     Dosage: 2.36 MILLIGRAM, QD
     Route: 058
     Dates: start: 20210122
  2. TEDUGLUTIDE [Suspect]
     Active Substance: TEDUGLUTIDE
     Indication: SHORT-BOWEL SYNDROME
     Dosage: 0.4700 (UNIT UNSPECIFIED), QD
     Route: 058
     Dates: start: 20190516
  3. TEDUGLUTIDE [Suspect]
     Active Substance: TEDUGLUTIDE
     Dosage: 2.36 MILLIGRAM, QD
     Route: 058
     Dates: start: 20210122
  4. TEDUGLUTIDE [Suspect]
     Active Substance: TEDUGLUTIDE
     Indication: SHORT-BOWEL SYNDROME
     Dosage: UNK
     Route: 065
  5. TEDUGLUTIDE [Suspect]
     Active Substance: TEDUGLUTIDE
     Indication: SHORT-BOWEL SYNDROME
     Dosage: 0.4700 (UNIT UNSPECIFIED), QD
     Route: 058
     Dates: start: 20190516
  6. TEDUGLUTIDE [Suspect]
     Active Substance: TEDUGLUTIDE
     Dosage: 2.36 MILLIGRAM, QD
     Route: 058
     Dates: start: 20210122
  7. TEDUGLUTIDE [Suspect]
     Active Substance: TEDUGLUTIDE
     Indication: SHORT-BOWEL SYNDROME
     Dosage: UNK
     Route: 065
  8. TEDUGLUTIDE [Suspect]
     Active Substance: TEDUGLUTIDE
     Indication: SHORT-BOWEL SYNDROME
     Dosage: UNK
     Route: 065
  9. TEDUGLUTIDE [Suspect]
     Active Substance: TEDUGLUTIDE
     Indication: SHORT-BOWEL SYNDROME
     Dosage: UNK
     Route: 065
  10. TEDUGLUTIDE [Suspect]
     Active Substance: TEDUGLUTIDE
     Indication: SHORT-BOWEL SYNDROME
     Dosage: 0.4700 (UNIT UNSPECIFIED), QD
     Route: 058
     Dates: start: 20190516
  11. TEDUGLUTIDE [Suspect]
     Active Substance: TEDUGLUTIDE
     Indication: SHORT-BOWEL SYNDROME
     Dosage: 0.4700 (UNIT UNSPECIFIED), QD
     Route: 058
     Dates: start: 20190516
  12. TEDUGLUTIDE [Suspect]
     Active Substance: TEDUGLUTIDE
     Dosage: 2.36 MILLIGRAM, QD
     Route: 058
     Dates: start: 20210122

REACTIONS (7)
  - Product dose omission issue [Recovered/Resolved]
  - Weight decreased [Recovered/Resolved]
  - Pneumonia [Unknown]
  - Crohn^s disease [Unknown]
  - Abdominal pain upper [Unknown]
  - Short-bowel syndrome [Unknown]
  - Hospitalisation [Unknown]
